FAERS Safety Report 4647101-0 (Version None)
Quarter: 2005Q2

REPORT INFORMATION
  Report Type: 
  Country: None (occurrence: None)
  Receive Date: 20050331
  Receipt Date: 20050125
  Transmission Date: 20051028
  Serious: No
  Sender: FDA-Public Use
  Company Number: 05P-163-0288061-00

PATIENT
  Age: 64 Year
  Sex: Male
  Weight: 90.7194 kg

DRUGS (10)
  1. HUMIRA [Suspect]
     Indication: RHEUMATOID ARTHRITIS
     Dosage: 40 MG, 1 IN 2 WK, SUBCUTANEOUS
     Route: 058
     Dates: start: 20040101, end: 20041201
  2. FOLIC ACID [Concomitant]
  3. LEVOTHYROXINE SODIUM [Concomitant]
  4. TRILEPTAL [Concomitant]
  5. PANTOPRAZOLE SODIUM [Concomitant]
  6. AMITRIPTYLINE [Concomitant]
  7. TREXALL [Concomitant]
  8. RESTASIS [Concomitant]
  9. CELECOXIB [Concomitant]
  10. HYDROXYCHLOROQUINE SULFATE [Concomitant]

REACTIONS (1)
  - IMPAIRED HEALING [None]
